FAERS Safety Report 23705060 (Version 2)
Quarter: 2024Q3

REPORT INFORMATION
  Report Type: Spontaneous
  Country: DE (occurrence: DE)
  Receive Date: 20240404
  Receipt Date: 20240809
  Transmission Date: 20241016
  Serious: Yes (Life-Threatening, Hospitalization, Other)
  Sender: ALKEM
  Company Number: None

PATIENT
  Age: 86 Year
  Sex: Male
  Weight: 68 kg

DRUGS (11)
  1. IBUPROFEN [Suspect]
     Active Substance: IBUPROFEN
     Indication: Pain
     Dosage: 400 MILLIGRAM (TABLET)
     Route: 065
     Dates: end: 20240220
  2. RUXOLITINIB [Suspect]
     Active Substance: RUXOLITINIB
     Indication: Polycythaemia vera
     Dosage: UNK
     Route: 065
     Dates: end: 20240220
  3. RUXOLITINIB [Suspect]
     Active Substance: RUXOLITINIB
     Dosage: UNK
     Route: 065
  4. CHOLECALCIFEROL [Concomitant]
     Active Substance: CHOLECALCIFEROL
     Indication: Product used for unknown indication
     Dosage: 20000 INTERNATIONAL UNIT, (EVERY 1 WEEK)
     Route: 048
  5. CHOLECALCIFEROL [Concomitant]
     Active Substance: CHOLECALCIFEROL
     Indication: Product used for unknown indication
     Dosage: 20000 INTERNATIONAL UNIT, ONCE WEEKLY
     Route: 048
  6. FOLIC ACID [Concomitant]
     Active Substance: FOLIC ACID
     Indication: Product used for unknown indication
     Dosage: 5 MILLIGRAM, ONCE WEEKLY
     Route: 048
  7. FOLIC ACID [Concomitant]
     Active Substance: FOLIC ACID
     Indication: Product used for unknown indication
     Dosage: 5 MILLIGRAM, ONCE WEEKLY, (EVERY 1 WEEK)
     Route: 048
  8. MELATONIN [Concomitant]
     Active Substance: MELATONIN
     Indication: Product used for unknown indication
     Dosage: 2 MILLIGRAM
     Route: 048
  9. METOPROLOL [Concomitant]
     Active Substance: METOPROLOL
     Indication: Product used for unknown indication
     Dosage: 47.5 MILLIGRAM, QD
     Route: 065
  10. PANTOPRAZOLE SODIUM [Concomitant]
     Active Substance: PANTOPRAZOLE SODIUM
     Indication: Gastrointestinal disorder
     Dosage: 40 MILLIGRAM, QD,( EVERY 1 DAY)
     Route: 048
  11. SACCHAROMYCES CEREVISIAE [Concomitant]
     Active Substance: SACCHAROMYCES CEREVISIAE
     Indication: Product used for unknown indication
     Dosage: 750 MILLIGRAM, QD
     Route: 065

REACTIONS (40)
  - Hyperkalaemia [Recovering/Resolving]
  - Acute kidney injury [Recovering/Resolving]
  - Clostridium difficile colitis [Unknown]
  - Contusion [Unknown]
  - Fall [Unknown]
  - Skin abrasion [Unknown]
  - Aortic arteriosclerosis [Unknown]
  - Aortic valve incompetence [Unknown]
  - Humerus fracture [Unknown]
  - Mitral valve incompetence [Unknown]
  - Pneumonia [Unknown]
  - Tricuspid valve incompetence [Unknown]
  - Urinary tract obstruction [Unknown]
  - Urinary retention [Recovered/Resolved]
  - Femoral neck fracture [Unknown]
  - Hydrocholecystis [Unknown]
  - Atrial fibrillation [Unknown]
  - Small intestinal obstruction [Unknown]
  - Cardiac failure [Unknown]
  - Hepatic steatosis [Unknown]
  - Atrioventricular block [Unknown]
  - Back pain [Unknown]
  - Bundle branch block left [Unknown]
  - Dyspnoea [Unknown]
  - Ejection fraction [Recovering/Resolving]
  - General physical health deterioration [Unknown]
  - Gastrointestinal sounds abnormal [Unknown]
  - Gastrointestinal wall thickening [Unknown]
  - Hepatic cyst [Unknown]
  - Hepatomegaly [Unknown]
  - Mitral valve sclerosis [Unknown]
  - Mucosal dryness [Unknown]
  - Osteopenia [Unknown]
  - Renal cyst [Unknown]
  - Pleural effusion [Recovering/Resolving]
  - Abdominal discomfort [Unknown]
  - Metabolic acidosis [Unknown]
  - Polyuria [Unknown]
  - Depression [Unknown]
  - Hypertension [Unknown]

NARRATIVE: CASE EVENT DATE: 20231201
